FAERS Safety Report 5646548-3 (Version None)
Quarter: 2008Q1

REPORT INFORMATION
  Report Type: 
  Country: None (occurrence: None)
  Receive Date: 20080228
  Receipt Date: 20080228
  Transmission Date: 20080703
  Serious: Yes (Hospitalization)
  Sender: FDA-Public Use
  Company Number: None

PATIENT
  Sex: Female

DRUGS (10)
  1. NOVOLIN N [Suspect]
     Indication: DIABETES MELLITUS
     Dosage: 16 UNITS AT 10 PM PRIOR TO ER VISIT
  2. NOVOLOG MIX 70/30 [Concomitant]
  3. HUMALOG [Concomitant]
  4. METOPROLOL TARTRATE [Concomitant]
  5. ALTACE [Concomitant]
  6. ZETIA [Concomitant]
  7. ACTOS [Concomitant]
  8. NIFEDIPINE [Concomitant]
  9. HYDROCHLOROTHIAZIDE [Concomitant]
  10. SYNTHROID [Concomitant]

REACTIONS (3)
  - AGGRESSION [None]
  - SCREAMING [None]
  - UNRESPONSIVE TO STIMULI [None]
